APPROVED DRUG PRODUCT: DEXMETHYLPHENIDATE HYDROCHLORIDE
Active Ingredient: DEXMETHYLPHENIDATE HYDROCHLORIDE
Strength: 10MG
Dosage Form/Route: TABLET;ORAL
Application: A209754 | Product #002
Applicant: BIONPHARMA INC
Approved: Mar 24, 2020 | RLD: No | RS: No | Type: DISCN